FAERS Safety Report 4988052-1 (Version None)
Quarter: 2006Q2

REPORT INFORMATION
  Report Type: 
  Country: None (occurrence: None)
  Receive Date: 20060424
  Receipt Date: 20060413
  Transmission Date: 20061013
  Serious: Yes (Hospitalization)
  Sender: FDA-Public Use
  Company Number: 2006-04-0938

PATIENT
  Age: 54 Year
  Sex: Male

DRUGS (1)
  1. INTRON A [Suspect]
     Indication: HEPATITIS C
     Dosage: INTRAMUSCULAR
     Route: 030
     Dates: start: 20050501

REACTIONS (5)
  - BLINDNESS UNILATERAL [None]
  - CONDITION AGGRAVATED [None]
  - MULTIPLE SCLEROSIS [None]
  - MYELITIS [None]
  - OPTIC NEURITIS [None]
